FAERS Safety Report 15262139 (Version 1)
Quarter: 2018Q3

REPORT INFORMATION
  Report Type: Spontaneous
  Country: US (occurrence: US)
  Receive Date: 20180809
  Receipt Date: 20180809
  Transmission Date: 20181010
  Serious: Yes (Other)
  Sender: FDA-Public Use
  Company Number: US-GUERBET-US-20180200

PATIENT
  Sex: Female

DRUGS (3)
  1. OPTIMARK [Suspect]
     Active Substance: GADOVERSETAMIDE
     Dosage: ADMINISTERED SHORTLY AFTER ANOTHER MRI USING CONTRAST AGENT OPTIMARK (GADOVERSETAMIDE)
     Route: 042
  2. OPTIMARK [Suspect]
     Active Substance: GADOVERSETAMIDE
     Indication: NUCLEAR MAGNETIC RESONANCE IMAGING
     Dosage: ADMINISTERED AROUND JULY 2016
     Route: 042
  3. OPTIMARK [Suspect]
     Active Substance: GADOVERSETAMIDE
     Dosage: ADMINISTERED PRIOR TO ANOTHER MRI USING CONTRAST AGENT OPTIMARK (GADOVERSETAMIDE)
     Route: 042

REACTIONS (6)
  - Headache [Unknown]
  - Medication residue present [Unknown]
  - Blood potassium decreased [Unknown]
  - Paraparesis [Unknown]
  - Quality of life decreased [Unknown]
  - Asthenia [Unknown]
